FAERS Safety Report 11279398 (Version 7)
Quarter: 2020Q3

REPORT INFORMATION
  Report Type: Report from Study
  Country: US (occurrence: US)
  Receive Date: 20150717
  Receipt Date: 20160503
  Transmission Date: 20201105
  Serious: Yes (Hospitalization)
  Sender: FDA-Public Use
  Company Number: US-JNJFOC-20150700795

PATIENT
  Age: 24 Year
  Sex: Male
  Weight: 63.9 kg

DRUGS (10)
  1. IRON [Concomitant]
     Active Substance: IRON
     Indication: ANAEMIA
     Route: 048
  2. NITROGLYCERIN. [Concomitant]
     Active Substance: NITROGLYCERIN
     Indication: ANAL FISSURE
     Route: 061
     Dates: start: 20120423
  3. USTEKINUMAB [Suspect]
     Active Substance: USTEKINUMAB
     Indication: CROHN^S DISEASE
     Dosage: STARTED AT 13:15 HOURS??ENDED AT 14:15 HOURS
     Route: 058
  4. USTEKINUMAB [Suspect]
     Active Substance: USTEKINUMAB
     Indication: CROHN^S DISEASE
     Dosage: STARTED AT 13:15 HOURS??ENDED AT 14:15 HOURS
     Route: 058
     Dates: start: 20120731
  5. BIFERA [Concomitant]
     Indication: ANAEMIA
     Route: 048
  6. NTG [Concomitant]
     Active Substance: NITROGLYCERIN
     Indication: PROCTALGIA
     Route: 061
     Dates: start: 20120423
  7. SULFASALAZINE. [Concomitant]
     Active Substance: SULFASALAZINE
     Indication: ARTHRALGIA
     Route: 048
     Dates: start: 20130704
  8. LOMOTIL [Concomitant]
     Active Substance: ATROPINE SULFATE\DIPHENOXYLATE HYDROCHLORIDE
     Indication: DIARRHOEA
     Route: 048
     Dates: start: 20120425
  9. PERCOCET [Concomitant]
     Active Substance: ACETAMINOPHEN\OXYCODONE HYDROCHLORIDE
     Indication: ABDOMINAL PAIN
     Route: 048
     Dates: start: 20120425
  10. URSODIOL. [Concomitant]
     Active Substance: URSODIOL
     Indication: CHOLANGITIS SCLEROSING
     Route: 048
     Dates: start: 20120419

REACTIONS (1)
  - Pelvic pouch procedure [Recovered/Resolved]

NARRATIVE: CASE EVENT DATE: 20150629
